FAERS Safety Report 9564781 (Version 1)
Quarter: 2013Q3

REPORT INFORMATION
  Report Type: Spontaneous
  Country: DE (occurrence: DE)
  Receive Date: 20130930
  Receipt Date: 20130930
  Transmission Date: 20140515
  Serious: Yes (Hospitalization, Other)
  Sender: FDA-Public Use
  Company Number: DE-BAYER-2013-114943

PATIENT
  Age: 29 Year
  Sex: Female

DRUGS (1)
  1. MIRENA [Suspect]
     Dosage: UNK UNK, CONT
     Route: 015
     Dates: start: 2010, end: 2013

REACTIONS (6)
  - Vaginal haemorrhage [Unknown]
  - Abdominal pain lower [Unknown]
  - Panic attack [Unknown]
  - Anxiety [Unknown]
  - Breast pain [Unknown]
  - Arrhythmia [Unknown]
